FAERS Safety Report 12385192 (Version 1)
Quarter: 2016Q2

REPORT INFORMATION
  Report Type: Spontaneous
  Country: US (occurrence: US)
  Receive Date: 20160519
  Receipt Date: 20160519
  Transmission Date: 20160815
  Serious: No
  Sender: FDA-Public Use
  Company Number: US-009507513-1605USA007212

PATIENT
  Sex: Female
  Weight: 99.77 kg

DRUGS (1)
  1. NEXPLANON [Suspect]
     Active Substance: ETONOGESTREL
     Dosage: 68 MG (1 ROD) EVERY 3 YEARS
     Route: 059
     Dates: start: 20150715, end: 20160511

REACTIONS (3)
  - Product quality issue [Unknown]
  - No adverse event [Unknown]
  - Device kink [Recovered/Resolved]
